FAERS Safety Report 5771529-9 (Version None)
Quarter: 2008Q2

REPORT INFORMATION
  Report Type: 
  Country: None (occurrence: None)
  Receive Date: 20080612
  Receipt Date: 20080612
  Transmission Date: 20081010
  Serious: No
  Sender: FDA-Public Use
  Company Number: None

PATIENT
  Age: 64 Year
  Sex: Female
  Weight: 65.7716 kg

DRUGS (1)
  1. BLINK TEARS ADVANCED MEDICAL OPTICS, INC. [Suspect]
     Dates: start: 20080611, end: 20080611

REACTIONS (1)
  - EYE INFECTION [None]
